FAERS Safety Report 20149710 (Version 4)
Quarter: 2022Q2

REPORT INFORMATION
  Report Type: Report from Study
  Country: US (occurrence: US)
  Receive Date: 20211206
  Receipt Date: 20220612
  Transmission Date: 20220721
  Serious: Yes (Other)
  Sender: FDA-Public Use
  Company Number: US-ABBVIE-21K-163-4184884-00

PATIENT
  Age: 54 Year
  Sex: Female

DRUGS (1)
  1. HUMIRA [Suspect]
     Active Substance: ADALIMUMAB
     Indication: Uveitis
     Route: 058
     Dates: start: 20211117

REACTIONS (9)
  - Cataract operation complication [Unknown]
  - Cataract [Not Recovered/Not Resolved]
  - Vitreous floaters [Unknown]
  - Eye inflammation [Not Recovered/Not Resolved]
  - Photophobia [Unknown]
  - Ocular hyperaemia [Unknown]
  - Swelling [Unknown]
  - Therapeutic product effect incomplete [Unknown]
  - COVID-19 [Unknown]

NARRATIVE: CASE EVENT DATE: 20211101
